FAERS Safety Report 9443826 (Version 1)
Quarter: 2013Q3

REPORT INFORMATION
  Report Type: Spontaneous
  Country: JP (occurrence: JP)
  Receive Date: 20130806
  Receipt Date: 20130806
  Transmission Date: 20140515
  Serious: Yes (Death)
  Sender: FDA-Public Use
  Company Number: JP-ROCHE-1249386

PATIENT
  Age: 54 Year
  Sex: Male
  Weight: 60 kg

DRUGS (15)
  1. AVASTIN [Suspect]
     Indication: RECTAL CANCER METASTATIC
     Route: 041
     Dates: start: 20121130, end: 20130111
  2. AVASTIN [Suspect]
     Indication: RECTAL CANCER METASTATIC
     Route: 041
     Dates: start: 20130222, end: 20130308
  3. AVASTIN [Suspect]
     Indication: RECTAL CANCER METASTATIC
     Route: 041
     Dates: start: 20130419, end: 20130419
  4. IRINOTECAN HYDROCHLORIDE [Concomitant]
     Indication: COLON CANCER
     Dosage: DOSAGE IS UNCERTAIN.
     Route: 041
     Dates: start: 20121130, end: 20121130
  5. IRINOTECAN HYDROCHLORIDE [Concomitant]
     Indication: RECTAL CANCER METASTATIC
     Route: 041
     Dates: start: 20121214
  6. 5-FU [Concomitant]
     Indication: COLON CANCER
     Dosage: DOSAGE IS UNCERTAIN.
     Route: 040
     Dates: start: 20121130, end: 20121130
  7. 5-FU [Concomitant]
     Indication: COLON CANCER
     Dosage: DOSAGE IS UNCERTAIN.
     Route: 041
     Dates: start: 20121130, end: 20121130
  8. 5-FU [Concomitant]
     Indication: RECTAL CANCER METASTATIC
     Route: 040
     Dates: start: 20121214
  9. 5-FU [Concomitant]
     Indication: RECTAL CANCER METASTATIC
     Route: 041
     Dates: start: 20121214, end: 20130125
  10. 5-FU [Concomitant]
     Indication: RECTAL CANCER METASTATIC
     Route: 041
     Dates: start: 20130208, end: 20130222
  11. 5-FU [Concomitant]
     Indication: RECTAL CANCER METASTATIC
     Route: 041
     Dates: start: 20130308, end: 20130510
  12. LEVOFOLINATE [Concomitant]
     Indication: COLON CANCER
     Dosage: DOSAGE IS UNCERTAIN.
     Route: 041
     Dates: start: 20121130, end: 20121130
  13. LEVOFOLINATE [Concomitant]
     Indication: RECTAL CANCER METASTATIC
     Route: 041
     Dates: start: 20121214
  14. LOXOPROFEN SODIUM [Concomitant]
     Indication: CANCER PAIN
     Dosage: DOSAGE IS UNCERTAIN.
     Route: 065
     Dates: start: 20130510
  15. CETUXIMAB [Concomitant]

REACTIONS (8)
  - Gastrointestinal perforation [Fatal]
  - Sepsis [Fatal]
  - Constipation [Unknown]
  - Neuropathy peripheral [Unknown]
  - Abdominal distension [Unknown]
  - Nausea [Unknown]
  - Gastritis [Unknown]
  - Hepatic enzyme increased [Unknown]
